FAERS Safety Report 7424162-7 (Version None)
Quarter: 2011Q2

REPORT INFORMATION
  Report Type: 
  Country: None (occurrence: None)
  Receive Date: 20110419
  Receipt Date: 20110414
  Transmission Date: 20111010
  Serious: Yes (Other)
  Sender: FDA-Public Use
  Company Number: FR-MERCK-1104FRA00076

PATIENT
  Age: 53 Year
  Sex: Male

DRUGS (5)
  1. VORICONAZOLE [Concomitant]
     Route: 065
     Dates: start: 20101124, end: 20101125
  2. PRIMAXIN [Suspect]
     Route: 042
     Dates: start: 20101129
  3. TIGECYCLINE [Concomitant]
     Route: 065
     Dates: start: 20101116, end: 20101124
  4. CANCIDAS [Concomitant]
     Route: 042
     Dates: start: 20101126
  5. PRIMAXIN [Suspect]
     Indication: PRODUCT USED FOR UNKNOWN INDICATION
     Route: 042
     Dates: start: 20101126, end: 20101128

REACTIONS (4)
  - EXPRESSIVE LANGUAGE DISORDER [None]
  - CONFUSIONAL STATE [None]
  - DISORIENTATION [None]
  - BLOOD CREATININE INCREASED [None]
